FAERS Safety Report 9851540 (Version 1)
Quarter: 2014Q1

REPORT INFORMATION
  Report Type: Spontaneous
  Country: US (occurrence: US)
  Receive Date: 20140129
  Receipt Date: 20140129
  Transmission Date: 20141002
  Serious: No
  Sender: FDA-Public Use
  Company Number: US-BIOGENIDEC-2014BI008251

PATIENT
  Age: 37 Year
  Sex: Male

DRUGS (1)
  1. TYSABRI [Suspect]
     Indication: MULTIPLE SCLEROSIS
     Route: 042
     Dates: start: 20131224

REACTIONS (9)
  - Muscle disorder [Not Recovered/Not Resolved]
  - Clonus [Not Recovered/Not Resolved]
  - Neuralgia [Not Recovered/Not Resolved]
  - Depressed mood [Not Recovered/Not Resolved]
  - Loss of control of legs [Recovered/Resolved]
  - Cognitive disorder [Not Recovered/Not Resolved]
  - General physical health deterioration [Not Recovered/Not Resolved]
  - Suicidal ideation [Not Recovered/Not Resolved]
  - Malaise [Not Recovered/Not Resolved]
